FAERS Safety Report 16998137 (Version 1)
Quarter: 2019Q4

REPORT INFORMATION
  Report Type: Spontaneous
  Country: US (occurrence: US)
  Receive Date: 20190924
  Receipt Date: 20190924
  Transmission Date: 20200122
  Serious: Yes (Hospitalization)
  Sender: FDA-Public Use
  Company Number: None

PATIENT
  Age: 22 Year
  Sex: Female

DRUGS (11)
  1. CLONAZEPAM. [Concomitant]
     Active Substance: CLONAZEPAM
  2. ENOXAPARIN [Concomitant]
     Active Substance: ENOXAPARIN
  3. FOLIC ACID. [Concomitant]
     Active Substance: FOLIC ACID
  4. APAP/CODIENE [Concomitant]
  5. JADENU [Suspect]
     Active Substance: DEFERASIROX
     Indication: SICKLE CELL ANAEMIA WITH CRISIS
     Route: 048
     Dates: start: 20181017
  6. WARFARIN [Concomitant]
     Active Substance: WARFARIN
  7. CYANOCHOBALAM [Concomitant]
  8. FLUOXETINE [Concomitant]
     Active Substance: FLUOXETINE HYDROCHLORIDE
  9. TRAMADOL. [Concomitant]
     Active Substance: TRAMADOL
  10. ONDANSETRON [Concomitant]
     Active Substance: ONDANSETRON
  11. HYDROXYUREA. [Concomitant]
     Active Substance: HYDROXYUREA

REACTIONS (2)
  - Fatigue [None]
  - Subclavian vein occlusion [None]

NARRATIVE: CASE EVENT DATE: 20190902
